FAERS Safety Report 9282126 (Version 1)
Quarter: 2013Q2

REPORT INFORMATION
  Report Type: Spontaneous
  Country: US (occurrence: None)
  Receive Date: 20130508
  Receipt Date: 20130508
  Transmission Date: 20140414
  Serious: Yes (Hospitalization)
  Sender: FDA-Public Use
  Company Number: None

PATIENT
  Age: 21 Year
  Sex: Female
  Weight: 53.2 kg

DRUGS (8)
  1. INSULIN [Suspect]
     Indication: DIABETES MELLITUS
     Dosage: ^RAN OUT^ CONTINOUS
     Route: 058
     Dates: start: 20110219, end: 20110220
  2. HEPARIN [Concomitant]
  3. CLINDAMYCIN [Concomitant]
  4. HYDROMORPHONE [Concomitant]
  5. MORPHINE [Concomitant]
  6. NICOTINE [Concomitant]
  7. 0XYCODONE [Concomitant]
  8. VANCOMYCIN [Concomitant]

REACTIONS (4)
  - Tachycardia [None]
  - Glucose urine present [None]
  - Cellulitis [None]
  - Drug dose omission [None]
